FAERS Safety Report 26188608 (Version 1)
Quarter: 2025Q4

REPORT INFORMATION
  Report Type: Spontaneous
  Country: EU (occurrence: EU)
  Receive Date: 20251222
  Receipt Date: 20251222
  Transmission Date: 20260118
  Serious: Yes (Other)
  Sender: JOHNSON AND JOHNSON
  Company Number: None

PATIENT
  Age: 37 Year
  Sex: Female

DRUGS (2)
  1. RILPIVIRINE [Suspect]
     Active Substance: RILPIVIRINE
     Indication: HIV infection
     Dosage: ONE BIMONTHLY IM INJECTION. THIRD DOSE ADMINISTERED TO THE PATIENT ON 27/11/2025. (INCOMPLETE INJECTION OF REKAMBYS)
     Route: 030
     Dates: start: 20250828
  2. VOCABRIA [Suspect]
     Active Substance: CABOTEGRAVIR SODIUM
     Indication: HIV infection
     Dosage: ONE IM INJECTION EVERY TWO MONTHS. THIRD DOSE ADMINISTERED TO THE PATIENT ON 27/11/2025
     Route: 030
     Dates: start: 20250828

REACTIONS (4)
  - Hot flush [Recovered/Resolved]
  - Dyspnoea [Recovered/Resolved]
  - Malaise [Recovered/Resolved]
  - Product administration interrupted [Recovered/Resolved]

NARRATIVE: CASE EVENT DATE: 20251127
